FAERS Safety Report 4266789-X (Version None)
Quarter: 2004Q1

REPORT INFORMATION
  Report Type: 
  Country: None (occurrence: None)
  Receive Date: 20040108
  Receipt Date: 20031020
  Transmission Date: 20041129
  Serious: No
  Sender: FDA-Public Use
  Company Number: US-BRISTOL-MYERS SQUIBB COMPANY-12415576

PATIENT
  Age: 67 Year
  Sex: Male

DRUGS (2)
  1. CARDIOLITE [Suspect]
     Dosage: DOSAGE 30MCI
     Dates: start: 20031017, end: 20031020
  2. ASPIRIN [Concomitant]

REACTIONS (1)
  - OEDEMA PERIPHERAL [None]
